FAERS Safety Report 4995363-2 (Version None)
Quarter: 2006Q2

REPORT INFORMATION
  Report Type: 
  Country: None (occurrence: None)
  Receive Date: 20060503
  Receipt Date: 20060419
  Transmission Date: 20061013
  Serious: Yes (Other)
  Sender: FDA-Public Use
  Company Number: DSA_60836_2006

PATIENT
  Age: 45 Year
  Sex: Male

DRUGS (6)
  1. DIASTAT [Suspect]
     Indication: CONVULSION
     Dosage: 15 MG PRN RC
     Route: 054
  2. ZONEGRAN [Concomitant]
  3. FOLIC ACID [Concomitant]
  4. TRILEPTAL [Concomitant]
  5. RISPERDAL [Concomitant]
  6. VITAMIN E [Concomitant]

REACTIONS (3)
  - CONVULSION [None]
  - DRUG DOSE OMISSION [None]
  - PHARMACEUTICAL PRODUCT COMPLAINT [None]
